FAERS Safety Report 6060742-1 (Version None)
Quarter: 2009Q1

REPORT INFORMATION
  Report Type: 
  Country: None (occurrence: None)
  Receive Date: 20090202
  Receipt Date: 20090121
  Transmission Date: 20090719
  Serious: Yes (Other)
  Sender: FDA-Public Use
  Company Number: GB-PFIZER INC-2008155649

PATIENT

DRUGS (4)
  1. SUTENT [Suspect]
     Route: 048
  2. AMOXICILLIN [Interacting]
  3. LANSOPRAZOLE [Concomitant]
     Dates: start: 20080806
  4. AMLODIPINE BESILATE [Concomitant]
     Dates: start: 20080806

REACTIONS (6)
  - DRUG INTERACTION [None]
  - DYSPEPSIA [None]
  - FATIGUE [None]
  - HYPOTHYROIDISM [None]
  - PALMAR-PLANTAR ERYTHRODYSAESTHESIA SYNDROME [None]
  - SWELLING FACE [None]
